FAERS Safety Report 24187835 (Version 3)
Quarter: 2024Q4

REPORT INFORMATION
  Report Type: Spontaneous
  Country: US (occurrence: US)
  Receive Date: 20240808
  Receipt Date: 20241230
  Transmission Date: 20250115
  Serious: No
  Sender: SANOFI AVENTIS
  Company Number: US-SA-SAC20240802000522

PATIENT
  Age: 20 Year
  Sex: Male
  Weight: 92.971 kg

DRUGS (2)
  1. ALPROLIX [Suspect]
     Active Substance: EFTRENONACOG ALFA
     Indication: Factor IX deficiency
     Dosage: 4325 U, QW (4325 UNITS (3893-4757) SLOW IV PUSH EVERY 7 DAYS AND EVERY 24 TO 48 HOURS AS NEEDED FOR
     Route: 042
     Dates: start: 202405
  2. ALPROLIX [Suspect]
     Active Substance: EFTRENONACOG ALFA
     Indication: Factor IX deficiency
     Dosage: 4325 U, QW (4325 UNITS (3893-4757) SLOW IV PUSH EVERY 7 DAYS AND EVERY 24 TO 48 HOURS AS NEEDED FOR
     Route: 042
     Dates: start: 202405

REACTIONS (5)
  - Traumatic haemorrhage [Unknown]
  - Joint dislocation [Unknown]
  - Haemorrhage [Unknown]
  - Weight decreased [Unknown]
  - Spontaneous haemorrhage [Unknown]

NARRATIVE: CASE EVENT DATE: 20240101
